FAERS Safety Report 5142893-9 (Version None)
Quarter: 2006Q4

REPORT INFORMATION
  Report Type: 
  Country: None (occurrence: None)
  Receive Date: 20061030
  Receipt Date: 20061016
  Transmission Date: 20070319
  Serious: Yes (Disabling)
  Sender: FDA-Public Use
  Company Number: 15016

PATIENT
  Age: 63 Year
  Sex: Male

DRUGS (2)
  1. PAMIDRONATE DISODIUM [Suspect]
     Dates: end: 20030901
  2. ZOMETA [Suspect]
     Indication: MULTIPLE MYELOMA
     Dates: start: 20030901, end: 20051201

REACTIONS (1)
  - OSTEONECROSIS [None]
